FAERS Safety Report 8016102-7 (Version None)
Quarter: 2011Q4

REPORT INFORMATION
  Report Type: 
  Country: None (occurrence: None)
  Receive Date: 20111228
  Receipt Date: 20111228
  Transmission Date: 20120403
  Serious: No
  Sender: FDA-Public Use
  Company Number: None

PATIENT
  Age: 41 Year
  Sex: Female
  Weight: 106.5953 kg

DRUGS (1)
  1. DEXAMETHASONE SODIUM PHOSPHATE [Suspect]
     Indication: INFLAMMATION
     Dosage: 4MG, 1CC INJECTION
     Dates: start: 20110614

REACTIONS (7)
  - INTERVERTEBRAL DISC PROTRUSION [None]
  - OROPHARYNGEAL PAIN [None]
  - ARTHRALGIA [None]
  - NO THERAPEUTIC RESPONSE [None]
  - COUGH [None]
  - PAIN IN EXTREMITY [None]
  - MOOD SWINGS [None]
